FAERS Safety Report 7308376-2 (Version None)
Quarter: 2011Q1

REPORT INFORMATION
  Report Type: 
  Country: None (occurrence: None)
  Receive Date: 20110223
  Receipt Date: 20110217
  Transmission Date: 20110831
  Serious: Yes (Other)
  Sender: FDA-Public Use
  Company Number: B0701646A

PATIENT
  Sex: Male

DRUGS (3)
  1. IBRUPROFEN [Concomitant]
  2. AERIUS [Concomitant]
  3. AVAMYS [Suspect]
     Indication: RHINITIS ALLERGIC
     Dosage: 2SPR TWICE PER DAY
     Route: 045
     Dates: start: 20110210, end: 20110212

REACTIONS (1)
  - ANOSMIA [None]
